FAERS Safety Report 17751340 (Version 2)
Quarter: 2020Q4

REPORT INFORMATION
  Report Type: Report from Study
  Country: US (occurrence: US)
  Receive Date: 20200506
  Receipt Date: 20201006
  Transmission Date: 20210113
  Serious: Yes (Other)
  Sender: FDA-Public Use
  Company Number: NVSC2020US122214

PATIENT
  Sex: Male

DRUGS (1)
  1. ENTRESTO [Suspect]
     Active Substance: SACUBITRIL\VALSARTAN
     Indication: CARDIAC FAILURE CHRONIC
     Dosage: 1 DF, BID (24/26 MG)
     Route: 065
     Dates: start: 201909

REACTIONS (5)
  - Renal failure [Unknown]
  - Gait disturbance [Unknown]
  - Blindness [Unknown]
  - Cerebrovascular accident [Unknown]
  - Myocardial infarction [Unknown]
